FAERS Safety Report 5323797-5 (Version None)
Quarter: 2007Q2

REPORT INFORMATION
  Report Type: 
  Country: None (occurrence: None)
  Receive Date: 20070514
  Receipt Date: 20070508
  Transmission Date: 20071010
  Serious: Yes (Death, Life-Threatening, Hospitalization, Disabling)
  Sender: FDA-Public Use
  Company Number: A0650459A

PATIENT
  Sex: Male
  Weight: 98 kg

DRUGS (2)
  1. ARIXTRA [Suspect]
     Indication: PULMONARY HYPERTENSION
     Dosage: 7.5MG UNKNOWN
     Route: 058
  2. NO CONCURRENT MEDICATION [Concomitant]

REACTIONS (2)
  - COAGULOPATHY [None]
  - HEPARIN-INDUCED THROMBOCYTOPENIA [None]
